FAERS Safety Report 26120013 (Version 1)
Quarter: 2025Q4

REPORT INFORMATION
  Report Type: Spontaneous
  Country: EU (occurrence: EU)
  Receive Date: 20251204
  Receipt Date: 20251204
  Transmission Date: 20260118
  Serious: Yes (Life-Threatening, Other)
  Sender: RANBAXY
  Company Number: EU-MINISAL02-1054229

PATIENT
  Age: 24 Year
  Sex: Female

DRUGS (4)
  1. ALPRAZOLAM [Suspect]
     Active Substance: ALPRAZOLAM
     Indication: Product used for unknown indication
     Dosage: 30 MILLIGRAM, 1MG 30 TABLETS (30 MG)
     Route: 048
     Dates: start: 20250814, end: 20250814
  2. VENLAFAXINE HYDROCHLORIDE [Suspect]
     Active Substance: VENLAFAXINE HYDROCHLORIDE
     Indication: Product used for unknown indication
     Dosage: 300 MILLIGRAM, 75 MG4 CP ( 300 MG)
     Route: 048
     Dates: start: 20250814, end: 20250814
  3. VENLAFAXINE HYDROCHLORIDE [Suspect]
     Active Substance: VENLAFAXINE HYDROCHLORIDE
     Indication: Product used for unknown indication
     Dosage: 450 MILLIGRAM, 225 2CP ( 450 MG)
     Route: 048
     Dates: start: 20250814, end: 20250814
  4. IBUPROFEN [Suspect]
     Active Substance: IBUPROFEN
     Indication: Product used for unknown indication
     Dosage: 600 MG DOSAGE NOT SPECIFIED
     Route: 048
     Dates: start: 20250814, end: 20250814

REACTIONS (5)
  - Drug abuse [Recovered/Resolved]
  - Intentional self-injury [Recovered/Resolved]
  - Somnolence [Recovered/Resolved]
  - Cognitive disorder [Recovered/Resolved]
  - Sinus bradycardia [Recovered/Resolved]

NARRATIVE: CASE EVENT DATE: 20250814
